FAERS Safety Report 6156447-9 (Version None)
Quarter: 2009Q2

REPORT INFORMATION
  Report Type: 
  Country: None (occurrence: None)
  Receive Date: 20090413
  Receipt Date: 20090401
  Transmission Date: 20091009
  Serious: Yes (Hospitalization, Disabling, Other)
  Sender: FDA-Public Use
  Company Number: 237086J08USA

PATIENT
  Age: 32 Year
  Sex: Female
  Weight: 68 kg

DRUGS (8)
  1. REBIF [Suspect]
     Indication: MULTIPLE SCLEROSIS
     Dosage: 44 MCG, 3 IN 1 WEEKS, SUBCUTANEOUS
     Route: 058
     Dates: start: 20071010, end: 20080901
  2. TYLENOL (COTYLENOL) [Concomitant]
  3. LEXAPRO [Concomitant]
  4. PROVIGIL [Concomitant]
  5. LEVOTHYROXINE(LEVOTHYROXINE /00068001/) [Concomitant]
  6. NEURONTIN [Concomitant]
  7. MAXALT (RIZATRIPTAN) [Concomitant]
  8. BACLOFEN [Concomitant]

REACTIONS (3)
  - DYSFUNCTIONAL UTERINE BLEEDING [None]
  - DYSMENORRHOEA [None]
  - MENOMETRORRHAGIA [None]
